FAERS Safety Report 7056616-X (Version None)
Quarter: 2010Q4

REPORT INFORMATION
  Report Type: 
  Country: None (occurrence: None)
  Receive Date: 20101018
  Receipt Date: 20101005
  Transmission Date: 20110411
  Serious: Yes (Death)
  Sender: FDA-Public Use
  Company Number: B0677880A

PATIENT
  Age: 43 Year
  Sex: Male

DRUGS (5)
  1. PIPERACILLINNA+TAZOBACTNA (FORMULATION UNKNOWN) (GENERIC) (PIPERACILLI [Suspect]
     Indication: SEPSIS
  2. FLUCLOXACILLIN SODIUM (FORMULATION UNKNOWN) (GENERIC) (FLUCLOXACILLIN [Suspect]
     Dosage: INTRAVENOUS
     Route: 042
  3. METRONIDAZOLE [Suspect]
  4. GENTAMICIN SULFATE [Suspect]
  5. ACYCLOVIR [Suspect]

REACTIONS (12)
  - ACIDOSIS [None]
  - CALCULUS URETERIC [None]
  - COMPARTMENT SYNDROME [None]
  - ESCHERICHIA INFECTION [None]
  - HERPES SIMPLEX [None]
  - HYDRONEPHROSIS [None]
  - MUSCLE NECROSIS [None]
  - PATHOGEN RESISTANCE [None]
  - POST PROCEDURAL COMPLICATION [None]
  - PROCEDURAL HYPOTENSION [None]
  - SUPRAVENTRICULAR TACHYCARDIA [None]
  - TREATMENT FAILURE [None]
